FAERS Safety Report 8225811-6 (Version None)
Quarter: 2012Q1

REPORT INFORMATION
  Report Type: 
  Country: None (occurrence: None)
  Receive Date: 20120319
  Receipt Date: 20120309
  Transmission Date: 20120608
  Serious: Yes (Hospitalization, Disabling)
  Sender: FDA-Public Use
  Company Number: 2011SP00056415

PATIENT
  Age: 28 Year
  Sex: Female
  Weight: 113.3993 kg

DRUGS (4)
  1. NUVARING [Suspect]
     Indication: CONTRACEPTION
     Dates: start: 20040323
  2. NUVARING [Suspect]
     Indication: MENSTRUAL CYCLE MANAGEMENT
     Dates: start: 20040323
  3. NUVARING [Suspect]
     Indication: CONTRACEPTION
     Dates: start: 20091013, end: 20091201
  4. NUVARING [Suspect]
     Indication: MENSTRUAL CYCLE MANAGEMENT
     Dates: start: 20091013, end: 20091201

REACTIONS (9)
  - MULTIPLE INJURIES [None]
  - ANKLE FRACTURE [None]
  - DEEP VEIN THROMBOSIS [None]
  - PULMONARY EMBOLISM [None]
  - VAGINAL HAEMORRHAGE [None]
  - RIGHT VENTRICULAR FAILURE [None]
  - HYPERINSULINAEMIA [None]
  - POLYCYSTIC OVARIES [None]
  - PULMONARY INFARCTION [None]
